FAERS Safety Report 8000189-1 (Version None)
Quarter: 2011Q4

REPORT INFORMATION
  Report Type: 
  Country: None (occurrence: None)
  Receive Date: 20111222
  Receipt Date: 20111212
  Transmission Date: 20120403
  Serious: Yes (Hospitalization)
  Sender: FDA-Public Use
  Company Number: FR-ELI_LILLY_AND_COMPANY-FR201112002783

PATIENT
  Sex: Female

DRUGS (7)
  1. UVEDOSE [Concomitant]
  2. PROZAC [Suspect]
     Dosage: 10 MG, QD
     Route: 048
     Dates: start: 20080101, end: 20110713
  3. STRUCTUM [Concomitant]
  4. ACEBUTOLOL [Concomitant]
  5. TRILEPTAL [Concomitant]
     Indication: NEUROPATHY PERIPHERAL
     Dosage: 150 MG, QD
     Route: 048
     Dates: start: 20110615, end: 20110713
  6. LANSOPRAZOLE [Concomitant]
     Dosage: UNK
     Route: 048
     Dates: start: 20020101, end: 20110718
  7. CALCIUM CARBONATE [Concomitant]

REACTIONS (1)
  - AGRANULOCYTOSIS [None]
